FAERS Safety Report 13049811 (Version 15)
Quarter: 2021Q4

REPORT INFORMATION
  Report Type: Spontaneous
  Country: JP (occurrence: JP)
  Receive Date: 20161221
  Receipt Date: 20211204
  Transmission Date: 20220303
  Serious: Yes (Death, Life-Threatening, Hospitalization, Other)
  Sender: FDA-Public Use
  Company Number: JP-UNITED THERAPEUTICS-UNT-2016-010698

PATIENT
  Age: 26 Year
  Sex: Male
  Weight: 62 kg

DRUGS (45)
  1. REMODULIN [Suspect]
     Active Substance: TREPROSTINIL
     Indication: Portopulmonary hypertension
     Dosage: 0.000625 ?G/KG, CONTINUING
     Route: 058
     Dates: start: 20160622, end: 201606
  2. REMODULIN [Suspect]
     Active Substance: TREPROSTINIL
     Dosage: 0.004 ?G/KG, CONTINUING
     Route: 058
     Dates: start: 201606, end: 20160628
  3. REMODULIN [Suspect]
     Active Substance: TREPROSTINIL
     Dosage: 0.004375 ?G/KG, CONTINUING
     Route: 058
     Dates: start: 20160628, end: 20160702
  4. REMODULIN [Suspect]
     Active Substance: TREPROSTINIL
     Dosage: 0.005625 ?G/KG, CONTINUING
     Route: 058
     Dates: start: 20160702, end: 20160709
  5. REMODULIN [Suspect]
     Active Substance: TREPROSTINIL
     Dosage: 0.006875 ?G/KG, CONTINUING
     Route: 058
     Dates: start: 20160709, end: 20160714
  6. REMODULIN [Suspect]
     Active Substance: TREPROSTINIL
     Dosage: 0.00625 ?G/KG, CONTINUING
     Route: 058
     Dates: start: 20160714, end: 20160716
  7. REMODULIN [Suspect]
     Active Substance: TREPROSTINIL
     Dosage: 0.010625 ?G/KG, CONTINUING
     Route: 058
     Dates: start: 20160716, end: 201607
  8. REMODULIN [Suspect]
     Active Substance: TREPROSTINIL
     Dosage: 0.008125 ?G/KG, CONTINUING
     Route: 058
     Dates: start: 201607, end: 2016
  9. REMODULIN [Suspect]
     Active Substance: TREPROSTINIL
     Dosage: 0.0295 ?G/KG, CONTINUING
     Route: 058
     Dates: start: 2016, end: 201609
  10. REMODULIN [Suspect]
     Active Substance: TREPROSTINIL
     Dosage: 0.019375 ?G/KG, CONTINUING
     Route: 058
     Dates: start: 201609, end: 201609
  11. REMODULIN [Suspect]
     Active Substance: TREPROSTINIL
     Dosage: 0.043125 ?G/KG, CONTINUING
     Route: 058
     Dates: start: 201609, end: 20160918
  12. REMODULIN [Suspect]
     Active Substance: TREPROSTINIL
     Dosage: UNK, CONTINUING
     Route: 058
     Dates: start: 20160927, end: 20160929
  13. REMODULIN [Suspect]
     Active Substance: TREPROSTINIL
     Indication: Portopulmonary hypertension
     Dosage: UNK, CONTINUING
     Route: 041
     Dates: start: 20160918, end: 20160927
  14. REMODULIN [Suspect]
     Active Substance: TREPROSTINIL
     Dosage: UNK, CONTINUING
     Route: 041
     Dates: start: 20160929, end: 20161122
  15. REMODULIN [Suspect]
     Active Substance: TREPROSTINIL
     Dosage: 0.0675 ?G/KG, CONTINUING
     Route: 041
     Dates: start: 20161122, end: 201702
  16. REMODULIN [Suspect]
     Active Substance: TREPROSTINIL
     Dosage: 0.090 ?G/KG, CONTINUING
     Route: 041
     Dates: start: 201702
  17. REMODULIN [Suspect]
     Active Substance: TREPROSTINIL
     Dosage: 0.110 ?G/KG, CONTINUING
     Route: 041
     Dates: end: 201901
  18. REMODULIN [Suspect]
     Active Substance: TREPROSTINIL
     Dosage: 0.127 ?G/KG, CONTINUING
     Route: 041
     Dates: start: 201901, end: 201901
  19. REMODULIN [Suspect]
     Active Substance: TREPROSTINIL
     Dosage: 0.130 ?G/KG, CONTINUING
     Route: 041
     Dates: start: 201901
  20. REMODULIN [Suspect]
     Active Substance: TREPROSTINIL
     Dosage: 0.1278 ?G/KG, CONTINUING
     Route: 041
     Dates: start: 20190130, end: 201902
  21. REMODULIN [Suspect]
     Active Substance: TREPROSTINIL
     Dosage: 0.002 ?G/KG, CONTINUING
     Route: 041
     Dates: start: 201902, end: 201902
  22. REMODULIN [Suspect]
     Active Substance: TREPROSTINIL
     Dosage: 0.00324 ?G/KG, CONTINUING
     Route: 041
     Dates: start: 201902, end: 201903
  23. REMODULIN [Suspect]
     Active Substance: TREPROSTINIL
     Dosage: 0.001 ?G/KG, CONTINUING
     Route: 041
     Dates: start: 201903, end: 2019
  24. REMODULIN [Suspect]
     Active Substance: TREPROSTINIL
     Dosage: UNK, CONTINUING
     Route: 041
     Dates: start: 2019, end: 20190528
  25. OPSUMIT [Suspect]
     Active Substance: MACITENTAN
     Indication: Portopulmonary hypertension
     Dosage: 1 MG, UNK
     Route: 048
     Dates: start: 20161012
  26. OPSUMIT [Suspect]
     Active Substance: MACITENTAN
     Dosage: 2 MG, UNK
     Route: 048
     Dates: start: 20161018
  27. OPSUMIT [Suspect]
     Active Substance: MACITENTAN
     Dosage: 1 MG, UNK
     Route: 048
     Dates: start: 20161030
  28. NAPROXEN [Suspect]
     Active Substance: NAPROXEN
     Indication: Pain
     Dosage: UNK
     Route: 065
     Dates: start: 2016
  29. VENTAVIS [Concomitant]
     Active Substance: ILOPROST
     Indication: Portopulmonary hypertension
     Dosage: 5 ?G, Q6H
     Dates: start: 20160818
  30. FUROSEMIDE [Concomitant]
     Active Substance: FUROSEMIDE
     Indication: Portopulmonary hypertension
     Dosage: 160 MG, QD
     Route: 048
     Dates: start: 20160826
  31. SPIRONOLACTONE [Concomitant]
     Active Substance: SPIRONOLACTONE
     Indication: Portopulmonary hypertension
     Dosage: UNK
     Route: 048
     Dates: start: 20160826
  32. FAMOTIDINE [Concomitant]
     Active Substance: FAMOTIDINE
     Indication: Product used for unknown indication
     Dosage: 20 MG, QD
     Route: 048
  33. BIFIDOBACTERIUM SPP. [Concomitant]
     Active Substance: BIFIDOBACTERIUM SPP.
     Indication: Product used for unknown indication
     Dosage: 3 G, Q8H
     Route: 048
  34. SLOW K [Concomitant]
     Active Substance: POTASSIUM CHLORIDE
     Indication: Hypokalaemia
     Dosage: 1200 MG, Q12H
     Route: 048
  35. LOPERAMIDE [Concomitant]
     Active Substance: LOPERAMIDE
     Indication: Product used for unknown indication
     Dosage: 600 MG, Q12H
     Route: 048
  36. ADEMPAS [Concomitant]
     Active Substance: RIOCIGUAT
     Indication: Portopulmonary hypertension
     Dosage: 0.5 MG, QD
     Route: 048
     Dates: start: 20171206
  37. PROGRAF [Concomitant]
     Active Substance: TACROLIMUS
     Indication: Product used for unknown indication
     Dosage: UNK
     Route: 065
     Dates: start: 20190318, end: 20190517
  38. AMINO ACIDS\CARBOHYDRATES\MINERALS\SOYBEAN OIL\VITAMINS [Concomitant]
     Active Substance: AMINO ACIDS\CARBOHYDRATES\MINERALS\SOYBEAN OIL\VITAMINS
     Indication: Product used for unknown indication
     Dosage: UNK
     Route: 065
     Dates: start: 20190201, end: 20190518
  39. MIYA-BM [Concomitant]
     Active Substance: CLOSTRIDIUM BUTYRICUM SPORES STRAIN M-55
     Indication: Prophylaxis
     Dosage: UNK
     Route: 065
     Dates: start: 20190201, end: 20190518
  40. URSODIOL [Concomitant]
     Active Substance: URSODIOL
     Indication: Product used for unknown indication
     Dosage: UNK
     Route: 065
     Dates: start: 20190201, end: 20190518
  41. MOSAPRIDE CITRATE [Concomitant]
     Active Substance: MOSAPRIDE CITRATE
     Indication: Prophylaxis
     Dosage: UNK
     Route: 065
     Dates: start: 20190201, end: 20190518
  42. SULFAMETHOXAZOLE\TRIMETHOPRIM [Concomitant]
     Active Substance: SULFAMETHOXAZOLE\TRIMETHOPRIM
     Indication: Prophylaxis
     Dosage: UNK
     Route: 065
     Dates: start: 20190210, end: 20190518
  43. VALACYCLOVIR HYDROCHLORIDE [Concomitant]
     Active Substance: VALACYCLOVIR HYDROCHLORIDE
     Indication: Prophylaxis
     Dosage: UNK
     Route: 065
     Dates: start: 20190210, end: 20190518
  44. PREDNISOLONE [Concomitant]
     Active Substance: PREDNISOLONE
     Indication: Prophylaxis
     Dosage: UNK
     Route: 065
     Dates: start: 20190227, end: 20190518
  45. Azulene glutamine combination emec [Concomitant]
     Indication: Prophylaxis
     Dosage: UNK
     Route: 065
     Dates: start: 20190201, end: 20190518

REACTIONS (14)
  - Hepatic failure [Fatal]
  - Blood pressure decreased [Fatal]
  - Device related bacteraemia [Recovered/Resolved]
  - Right ventricular failure [Recovered/Resolved]
  - Pseudomembranous colitis [Unknown]
  - Thrombocytopenia [Not Recovered/Not Resolved]
  - Leukopenia [Unknown]
  - Injection site pain [Recovered/Resolved]
  - Injection site induration [Not Recovered/Not Resolved]
  - Diarrhoea [Recovering/Resolving]
  - Nausea [Recovered/Resolved]
  - Stomatitis [Recovered/Resolved]
  - Abdominal pain upper [Recovering/Resolving]
  - Vomiting [Recovering/Resolving]

NARRATIVE: CASE EVENT DATE: 20160623
